FAERS Safety Report 17804721 (Version 1)
Quarter: 2020Q2

REPORT INFORMATION
  Report Type: Report from Study
  Country: None (occurrence: RO)
  Receive Date: 20200519
  Receipt Date: 20200519
  Transmission Date: 20200714
  Serious: Yes (Other)
  Sender: FDA-Public Use
  Company Number: RO-ABBVIE-20K-135-3407444-00

PATIENT
  Age: 65 Year
  Sex: Male

DRUGS (10)
  1. TRITACE [Suspect]
     Active Substance: RAMIPRIL
     Indication: CARDIAC FIBRILLATION
     Route: 048
     Dates: start: 202004
  2. FOSTER [Concomitant]
     Active Substance: BECLOMETHASONE\FORMOTEROL
     Indication: ASTHMA
     Dosage: UNKNOWN
     Route: 055
  3. VENTOLIN [Concomitant]
     Active Substance: ALBUTEROL SULFATE
     Indication: ASTHMA
     Dosage: UNKNOWN
     Route: 055
  4. ASPENTER [Suspect]
     Active Substance: ASPIRIN
     Indication: CARDIAC FIBRILLATION
     Route: 048
     Dates: start: 202004
  5. ELIQUIS [Suspect]
     Active Substance: APIXABAN
     Indication: CARDIAC FIBRILLATION
     Route: 048
     Dates: start: 202004
  6. CONTROLOC [Concomitant]
     Active Substance: PANTOPRAZOLE SODIUM
     Indication: PROPHYLAXIS
     Route: 048
     Dates: start: 202004
  7. HUMIRA [Suspect]
     Active Substance: ADALIMUMAB
     Indication: PSORIASIS
     Route: 058
     Dates: start: 20130415
  8. CORYOL [CARVEDILOL] [Suspect]
     Active Substance: CARVEDILOL
     Indication: CARDIAC FIBRILLATION
     Route: 048
     Dates: start: 202004
  9. SPIRONOLACTONE. [Suspect]
     Active Substance: SPIRONOLACTONE
     Indication: CARDIAC FIBRILLATION
     Route: 048
     Dates: start: 202004
  10. XYZAL [Concomitant]
     Active Substance: LEVOCETIRIZINE DIHYDROCHLORIDE
     Indication: HYPERSENSITIVITY
     Route: 048
     Dates: start: 202004

REACTIONS (11)
  - Asthmatic crisis [Recovering/Resolving]
  - Insomnia [Not Recovered/Not Resolved]
  - Pruritus [Recovered/Resolved]
  - Hypersensitivity [Unknown]
  - Swelling face [Recovered/Resolved]
  - Muscle spasms [Not Recovered/Not Resolved]
  - Cardiac fibrillation [Not Recovered/Not Resolved]
  - Restlessness [Not Recovered/Not Resolved]
  - Fluid retention [Not Recovered/Not Resolved]
  - Pulmonary pain [Not Recovered/Not Resolved]
  - Peripheral swelling [Recovered/Resolved]

NARRATIVE: CASE EVENT DATE: 202004
